FAERS Safety Report 17954718 (Version 3)
Quarter: 2020Q3

REPORT INFORMATION
  Report Type: Report from Study
  Country: GB (occurrence: GB)
  Receive Date: 20200629
  Receipt Date: 20200715
  Transmission Date: 20201103
  Serious: Yes (Hospitalization)
  Sender: FDA-Public Use
  Company Number: GB-IPSEN BIOPHARMACEUTICALS, INC.-2020-11183

PATIENT
  Sex: Female

DRUGS (1)
  1. SOMATULINE AUTOGEL [Suspect]
     Active Substance: LANREOTIDE ACETATE
     Indication: NEUROENDOCRINE TUMOUR
     Dosage: 120 MG/0.5 ML
     Route: 058

REACTIONS (5)
  - Sepsis [Unknown]
  - Liver disorder [Unknown]
  - Dyspnoea [Unknown]
  - Cyst [Unknown]
  - Urinary tract infection [Unknown]
